FAERS Safety Report 6363601-X (Version None)
Quarter: 2009Q3

REPORT INFORMATION
  Report Type: 
  Country: None (occurrence: None)
  Receive Date: 20090919
  Receipt Date: 20090630
  Transmission Date: 20100115
  Serious: No
  Sender: FDA-Public Use
  Company Number: US-ABBOTT-09P-163-0582990-00

PATIENT
  Sex: Female
  Weight: 70.37 kg

DRUGS (7)
  1. HUMIRA [Suspect]
     Indication: RHEUMATOID ARTHRITIS
     Route: 058
     Dates: start: 20060101
  2. LEVOXYL [Concomitant]
     Indication: THYROID DISORDER
  3. RANITIDINE [Concomitant]
     Indication: DRUG USE FOR UNKNOWN INDICATION
  4. LOVAZA [Concomitant]
     Indication: DRUG USE FOR UNKNOWN INDICATION
  5. CALCIUM [Concomitant]
     Indication: DRUG USE FOR UNKNOWN INDICATION
  6. GLUCOSAMINE [Concomitant]
     Indication: DRUG USE FOR UNKNOWN INDICATION
  7. MAXALT [Concomitant]
     Indication: MIGRAINE

REACTIONS (3)
  - INJECTION SITE DISCOLOURATION [None]
  - INJECTION SITE HAEMORRHAGE [None]
  - INJECTION SITE PAIN [None]
